FAERS Safety Report 18387497 (Version 6)
Quarter: 2020Q4

REPORT INFORMATION
  Report Type: Report from Study
  Country: BE (occurrence: BE)
  Receive Date: 20201015
  Receipt Date: 20201222
  Transmission Date: 20210114
  Serious: Yes (Hospitalization, Other)
  Sender: FDA-Public Use
  Company Number: BE-BAYER-2020-138397

PATIENT
  Sex: Male

DRUGS (17)
  1. TAMSULOSIN [Concomitant]
     Active Substance: TAMSULOSIN
     Indication: PROSTATIC DISORDER
     Dosage: UNK
     Dates: start: 20200915
  2. DALIBOUR [Concomitant]
     Indication: PENILE DISCOMFORT
     Dosage: UNK
     Dates: start: 20200921
  3. PANTOPRAZOLE [Concomitant]
     Active Substance: PANTOPRAZOLE
     Dosage: UNK
  4. STIVARGA [Suspect]
     Active Substance: REGORAFENIB
     Indication: COLORECTAL CANCER
     Dosage: DAILY DOSE 120 MG
     Dates: start: 20200523, end: 20200529
  5. FINASTERIDE. [Concomitant]
     Active Substance: FINASTERIDE
     Dosage: UNK
  6. LORMETAZEPAM [Concomitant]
     Active Substance: LORMETAZEPAM
     Dosage: UNK
  7. GYNO-DAKTARIN [Concomitant]
     Active Substance: MICONAZOLE
     Indication: PENILE DISCOMFORT
     Dosage: UNK
     Dates: start: 20200921
  8. STIVARGA [Suspect]
     Active Substance: REGORAFENIB
     Indication: COLORECTAL CANCER
     Dosage: DAILY DOSE 80 MG
     Dates: start: 20200516, end: 20200522
  9. STIVARGA [Suspect]
     Active Substance: REGORAFENIB
     Indication: COLORECTAL CANCER
     Dosage: DAILY DOSE 120 MG
     Route: 048
     Dates: start: 20200718, end: 20200817
  10. COLITOFALK [Concomitant]
     Active Substance: MESALAMINE
     Dosage: 500 MG, UNK
     Dates: start: 202007, end: 202007
  11. UNI DIAMICRON [Concomitant]
     Active Substance: GLICLAZIDE
     Dosage: UNK
  12. STIVARGA [Suspect]
     Active Substance: REGORAFENIB
     Indication: COLORECTAL CANCER
     Dosage: 120 MG, UNK
     Dates: start: 20200826
  13. SIMVASTATIN. [Concomitant]
     Active Substance: SIMVASTATIN
     Dosage: UNK
  14. STIVARGA [Suspect]
     Active Substance: REGORAFENIB
     Indication: COLORECTAL CANCER
     Dosage: DAILY DOSE 160 MG
     Dates: start: 20200530
  15. OLMETEC [Concomitant]
     Active Substance: OLMESARTAN MEDOXOMIL
     Dosage: UNK
  16. PROGOR [Concomitant]
     Active Substance: DILTIAZEM HYDROCHLORIDE
     Dosage: UNK
  17. ELIQUIS [Concomitant]
     Active Substance: APIXABAN
     Dosage: UNK

REACTIONS (39)
  - Tachycardia [Recovering/Resolving]
  - Palmar-plantar erythrodysaesthesia syndrome [Recovered/Resolved]
  - Myalgia [Recovered/Resolved]
  - Headache [Recovering/Resolving]
  - Urinary retention [None]
  - Urine odour abnormal [Recovered/Resolved]
  - Hypoacusis [Not Recovered/Not Resolved]
  - Hypertension [Recovering/Resolving]
  - Off label use [None]
  - Intestinal obstruction [Recovered/Resolved]
  - Confusional state [Recovering/Resolving]
  - Intestinal obstruction [Recovered/Resolved]
  - Penile pain [Recovered/Resolved]
  - Change of bowel habit [Not Recovered/Not Resolved]
  - Colorectal cancer [Not Recovered/Not Resolved]
  - Anorectal discomfort [Recovered/Resolved]
  - Penile infection [Recovered/Resolved]
  - Bladder obstruction [None]
  - Blood urine present [Recovering/Resolving]
  - Fatigue [Not Recovered/Not Resolved]
  - Weight decreased [Recovered/Resolved]
  - Skin discolouration [Not Recovered/Not Resolved]
  - Depressed mood [Recovering/Resolving]
  - Decreased appetite [Not Recovered/Not Resolved]
  - Hypotonic urinary bladder [Not Recovered/Not Resolved]
  - Malaise [Recovered/Resolved]
  - Back pain [Recovered/Resolved]
  - Visual impairment [Not Recovered/Not Resolved]
  - Dysphonia [Recovering/Resolving]
  - Blood urine present [Recovered/Resolved]
  - Weight decreased [Recovered/Resolved]
  - Coccydynia [Not Recovered/Not Resolved]
  - Vomiting [Recovered/Resolved]
  - Pruritus [Recovered/Resolved]
  - Decreased appetite [Recovered/Resolved]
  - Muscle spasms [Recovered/Resolved]
  - Herpes zoster [Recovering/Resolving]
  - Muscle spasms [Not Recovered/Not Resolved]
  - Abnormal faeces [Recovered/Resolved]

NARRATIVE: CASE EVENT DATE: 20200516
